FAERS Safety Report 7131393-2 (Version None)
Quarter: 2010Q4

REPORT INFORMATION
  Report Type: 
  Country: None (occurrence: None)
  Receive Date: 20101201
  Receipt Date: 20101118
  Transmission Date: 20110411
  Serious: No
  Sender: FDA-Public Use
  Company Number: US-ELI_LILLY_AND_COMPANY-US201007005797

PATIENT
  Sex: Female

DRUGS (9)
  1. FORTEO [Suspect]
     Indication: OSTEOPOROSIS
     Dosage: 20 UG, DAILY (1/D)
     Route: 065
  2. FORTEO [Suspect]
     Dosage: UNK, UNKNOWN
  3. FORTEO [Suspect]
     Dosage: 20 UG, DAILY (1/D)
     Dates: start: 20100709, end: 20101016
  4. LEVOTHYROXINE SODIUM [Concomitant]
  5. BENICAR [Concomitant]
  6. VITAMINS [Concomitant]
  7. CALCIUM [Concomitant]
  8. VITAMIN B COMPLEX CAP [Concomitant]
  9. COENZYME Q10 [Concomitant]

REACTIONS (19)
  - ABNORMAL DREAMS [None]
  - ARTHRALGIA [None]
  - ARTHROPATHY [None]
  - ASTHENIA [None]
  - BONE DISORDER [None]
  - CHEST DISCOMFORT [None]
  - COUGH [None]
  - DIARRHOEA [None]
  - DIZZINESS [None]
  - EAR PAIN [None]
  - HYPOAESTHESIA [None]
  - INJECTION SITE HAEMATOMA [None]
  - MUSCLE DISORDER [None]
  - MUSCULAR WEAKNESS [None]
  - NASOPHARYNGITIS [None]
  - NERVE INJURY [None]
  - PAIN [None]
  - PAIN IN EXTREMITY [None]
  - RHINORRHOEA [None]
